FAERS Safety Report 16905000 (Version 17)
Quarter: 2025Q4

REPORT INFORMATION
  Report Type: Spontaneous
  Country: CA (occurrence: CA)
  Receive Date: 20191010
  Receipt Date: 20251230
  Transmission Date: 20260117
  Serious: Yes (Hospitalization, Disabling, Other)
  Sender: BAUSCH AND LOMB
  Company Number: CA-BAUSCH-BL-2019-055098

PATIENT
  Age: 72 Year
  Sex: Male

DRUGS (174)
  1. ALBUTEROL [Suspect]
     Active Substance: ALBUTEROL
     Indication: Eosinophilic granulomatosis with polyangiitis
     Dosage: NOT SPECIFIED (9 ADMINISTRATIONS).
     Route: 065
  2. RAMIPRIL [Suspect]
     Active Substance: RAMIPRIL
     Indication: Product used for unknown indication
     Route: 048
  3. RAMIPRIL [Suspect]
     Active Substance: RAMIPRIL
     Route: 048
  4. RAMIPRIL [Suspect]
     Active Substance: RAMIPRIL
     Route: 065
  5. RAMIPRIL [Suspect]
     Active Substance: RAMIPRIL
     Route: 065
  6. RAMIPRIL [Suspect]
     Active Substance: RAMIPRIL
     Route: 048
  7. RAMIPRIL [Suspect]
     Active Substance: RAMIPRIL
     Route: 065
  8. RAMIPRIL [Suspect]
     Active Substance: RAMIPRIL
     Route: 048
  9. RAMIPRIL [Suspect]
     Active Substance: RAMIPRIL
     Route: 048
  10. RAMIPRIL [Suspect]
     Active Substance: RAMIPRIL
     Dosage: 2 ADMINISTRATIONS
     Route: 065
  11. ALBUTEROL [Suspect]
     Active Substance: ALBUTEROL
     Indication: Eosinophilic granulomatosis with polyangiitis
     Route: 065
  12. LANSOPRAZOLE [Suspect]
     Active Substance: LANSOPRAZOLE
     Indication: Product used for unknown indication
     Dosage: CAPSULE, DELAYED RELEASE
     Route: 065
  13. LANSOPRAZOLE [Suspect]
     Active Substance: LANSOPRAZOLE
     Route: 065
  14. BICALUTAMIDE [Suspect]
     Active Substance: BICALUTAMIDE
     Indication: Product used for unknown indication
     Route: 048
  15. BICALUTAMIDE [Suspect]
     Active Substance: BICALUTAMIDE
     Route: 048
  16. BICALUTAMIDE [Suspect]
     Active Substance: BICALUTAMIDE
     Route: 048
  17. BICALUTAMIDE [Suspect]
     Active Substance: BICALUTAMIDE
     Route: 048
  18. BICALUTAMIDE [Suspect]
     Active Substance: BICALUTAMIDE
     Route: 048
  19. OMNARIS [Suspect]
     Active Substance: CICLESONIDE
     Indication: Product used for unknown indication
     Dosage: SPRAY-METERED DOSE
     Route: 045
  20. OMNARIS [Suspect]
     Active Substance: CICLESONIDE
     Dosage: SPRAY-METERED DOSE
     Route: 045
  21. OMNARIS [Suspect]
     Active Substance: CICLESONIDE
     Dosage: 6 ADMINISTRATIONS
     Route: 065
  22. OMNARIS [Suspect]
     Active Substance: CICLESONIDE
     Route: 065
  23. OMNARIS [Suspect]
     Active Substance: CICLESONIDE
     Dosage: SPRAY, METERED DOSE
     Route: 065
  24. OMNARIS [Suspect]
     Active Substance: CICLESONIDE
     Dosage: SPRAY, METERED DOSE
     Route: 048
  25. OMNARIS [Suspect]
     Active Substance: CICLESONIDE
     Route: 065
  26. OMNARIS [Suspect]
     Active Substance: CICLESONIDE
     Route: 065
  27. OMNARIS [Suspect]
     Active Substance: CICLESONIDE
     Dosage: INTRA-NASAL
     Route: 045
  28. ADVAIR HFA [Suspect]
     Active Substance: FLUTICASONE PROPIONATE\SALMETEROL XINAFOATE
     Indication: Eosinophilic granulomatosis with polyangiitis
     Dosage: 2 DOSAGE ADMINISTERED
     Route: 065
  29. ADVAIR HFA [Suspect]
     Active Substance: FLUTICASONE PROPIONATE\SALMETEROL XINAFOATE
     Route: 065
  30. ADVAIR HFA [Suspect]
     Active Substance: FLUTICASONE PROPIONATE\SALMETEROL XINAFOATE
     Route: 065
  31. ADVAIR HFA [Suspect]
     Active Substance: FLUTICASONE PROPIONATE\SALMETEROL XINAFOATE
     Dosage: 7 DOSAGE ADMINISTERED
     Route: 065
  32. ADVAIR HFA [Suspect]
     Active Substance: FLUTICASONE PROPIONATE\SALMETEROL XINAFOATE
     Route: 065
  33. ADVAIR HFA [Suspect]
     Active Substance: FLUTICASONE PROPIONATE\SALMETEROL XINAFOATE
     Route: 065
  34. ADVAIR HFA [Suspect]
     Active Substance: FLUTICASONE PROPIONATE\SALMETEROL XINAFOATE
     Route: 065
  35. ADVAIR HFA [Suspect]
     Active Substance: FLUTICASONE PROPIONATE\SALMETEROL XINAFOATE
     Dosage: 2 ADMINISTRATIONS
     Route: 065
  36. ADVAIR HFA [Suspect]
     Active Substance: FLUTICASONE PROPIONATE\SALMETEROL XINAFOATE
     Route: 065
  37. ADVAIR HFA [Suspect]
     Active Substance: FLUTICASONE PROPIONATE\SALMETEROL XINAFOATE
     Route: 065
  38. ADVAIR HFA [Suspect]
     Active Substance: FLUTICASONE PROPIONATE\SALMETEROL XINAFOATE
     Route: 065
  39. FOSAMAX [Suspect]
     Active Substance: ALENDRONATE SODIUM
     Indication: Product used for unknown indication
     Dosage: 3 ADMINISTRATIONS
     Route: 048
  40. FOSAMAX [Suspect]
     Active Substance: ALENDRONATE SODIUM
     Route: 065
  41. FOSAMAX [Suspect]
     Active Substance: ALENDRONATE SODIUM
     Route: 048
  42. FOSAMAX [Suspect]
     Active Substance: ALENDRONATE SODIUM
     Route: 065
  43. FOSAMAX [Suspect]
     Active Substance: ALENDRONATE SODIUM
     Route: 048
  44. CYCLOPHOSPHAMIDE [Suspect]
     Active Substance: CYCLOPHOSPHAMIDE
     Indication: Product used for unknown indication
     Dosage: DURATION 6 MONTHS
     Route: 048
  45. CYCLOPHOSPHAMIDE [Suspect]
     Active Substance: CYCLOPHOSPHAMIDE
     Dosage: 2 ADMINISTRATIONS
     Route: 042
  46. CYCLOPHOSPHAMIDE [Suspect]
     Active Substance: CYCLOPHOSPHAMIDE
     Route: 042
  47. CYCLOPHOSPHAMIDE [Suspect]
     Active Substance: CYCLOPHOSPHAMIDE
     Route: 042
  48. CYCLOPHOSPHAMIDE [Suspect]
     Active Substance: CYCLOPHOSPHAMIDE
     Route: 042
  49. CYCLOPHOSPHAMIDE [Suspect]
     Active Substance: CYCLOPHOSPHAMIDE
     Dosage: NOT SPECIFIED
     Route: 048
  50. CYCLOPHOSPHAMIDE [Suspect]
     Active Substance: CYCLOPHOSPHAMIDE
     Route: 042
  51. CYCLOPHOSPHAMIDE [Suspect]
     Active Substance: CYCLOPHOSPHAMIDE
     Route: 042
  52. CYCLOPHOSPHAMIDE [Suspect]
     Active Substance: CYCLOPHOSPHAMIDE
     Route: 042
  53. CYCLOPHOSPHAMIDE [Suspect]
     Active Substance: CYCLOPHOSPHAMIDE
     Route: 048
  54. CYCLOPHOSPHAMIDE [Suspect]
     Active Substance: CYCLOPHOSPHAMIDE
     Route: 048
  55. FOLATE SODIUM [Suspect]
     Active Substance: FOLATE SODIUM
     Indication: Product used for unknown indication
     Route: 065
  56. FOLATE SODIUM [Suspect]
     Active Substance: FOLATE SODIUM
     Dosage: NOT SPECIFIED
     Route: 065
  57. FOLATE SODIUM [Suspect]
     Active Substance: FOLATE SODIUM
     Dosage: NOT SPECIFIED
     Route: 065
  58. METHOTREXATE [Suspect]
     Active Substance: METHOTREXATE
     Indication: Product used for unknown indication
     Route: 065
  59. METHOTREXATE [Suspect]
     Active Substance: METHOTREXATE
     Route: 065
  60. METHOTREXATE [Suspect]
     Active Substance: METHOTREXATE
     Route: 065
  61. METHOTREXATE [Suspect]
     Active Substance: METHOTREXATE
     Dosage: 2 ADMINSTRATIONS
     Route: 065
  62. METHOTREXATE [Suspect]
     Active Substance: METHOTREXATE
     Route: 065
  63. METHOTREXATE [Suspect]
     Active Substance: METHOTREXATE
     Route: 065
  64. METHOTREXATE [Suspect]
     Active Substance: METHOTREXATE
     Dosage: 8 ADMINISTARTIONS
     Route: 065
  65. METHOTREXATE [Suspect]
     Active Substance: METHOTREXATE
     Route: 065
  66. METHOTREXATE [Suspect]
     Active Substance: METHOTREXATE
     Dosage: 2 ADMINISTRATIONS
     Route: 065
  67. METHOTREXATE [Suspect]
     Active Substance: METHOTREXATE
     Route: 065
  68. METHOTREXATE [Suspect]
     Active Substance: METHOTREXATE
     Route: 065
  69. METHOTREXATE [Suspect]
     Active Substance: METHOTREXATE
     Route: 065
  70. METHOTREXATE [Suspect]
     Active Substance: METHOTREXATE
     Route: 065
  71. METHOTREXATE [Suspect]
     Active Substance: METHOTREXATE
     Dosage: 2 ADMINSTRATIONS
     Route: 065
  72. METHOTREXATE [Suspect]
     Active Substance: METHOTREXATE
     Dosage: 2 ADMINSTRATIONS
     Route: 065
  73. METHOTREXATE [Suspect]
     Active Substance: METHOTREXATE
     Route: 065
  74. METHOTREXATE [Suspect]
     Active Substance: METHOTREXATE
     Dosage: NOT SPECIFIED, 2 ADMINISTRATIONS
     Route: 065
  75. METHOTREXATE [Suspect]
     Active Substance: METHOTREXATE
     Route: 065
  76. METHOTREXATE [Suspect]
     Active Substance: METHOTREXATE
     Dosage: 2 ADMINISTRATIONS
     Route: 065
  77. PREDNISONE [Suspect]
     Active Substance: PREDNISONE
     Indication: Product used for unknown indication
     Route: 065
  78. PREDNISONE [Suspect]
     Active Substance: PREDNISONE
     Route: 065
  79. PREDNISONE [Suspect]
     Active Substance: PREDNISONE
     Route: 065
  80. PREDNISONE [Suspect]
     Active Substance: PREDNISONE
     Dosage: 3 ADMINISTRATIONS
     Route: 065
  81. PREDNISONE [Suspect]
     Active Substance: PREDNISONE
     Dosage: 4 ADMINISTRATIONS
     Route: 065
  82. PREDNISONE [Suspect]
     Active Substance: PREDNISONE
     Route: 065
  83. PREDNISONE [Suspect]
     Active Substance: PREDNISONE
     Route: 065
  84. PREDNISONE [Suspect]
     Active Substance: PREDNISONE
     Route: 065
  85. PREDNISONE [Suspect]
     Active Substance: PREDNISONE
     Route: 065
  86. PREDNISONE [Suspect]
     Active Substance: PREDNISONE
     Dosage: PREDNISONE ACETATE, 3 ADMINISTRATIONS
     Route: 065
  87. PREDNISONE [Suspect]
     Active Substance: PREDNISONE
     Dosage: PREDNISONE ACETATE
     Route: 065
  88. PREDNISONE [Suspect]
     Active Substance: PREDNISONE
     Dosage: PREDNISONE ACETATE , 3 ADMINISTRATIONS
     Route: 065
  89. PREDNISONE [Suspect]
     Active Substance: PREDNISONE
     Dosage: PREDNISONE ACETATE
     Route: 065
  90. PREDNISONE [Suspect]
     Active Substance: PREDNISONE
     Dosage: PREDNISONE ACETATE
     Route: 065
  91. PREDNISONE [Suspect]
     Active Substance: PREDNISONE
     Dosage: PREDNISONE ACETATE
     Route: 065
  92. FLUTICASONE [Suspect]
     Active Substance: FLUTICASONE
     Indication: Eosinophilic granulomatosis with polyangiitis
     Route: 065
  93. FLUTICASONE [Suspect]
     Active Substance: FLUTICASONE
     Route: 065
  94. FLUTICASONE [Suspect]
     Active Substance: FLUTICASONE
     Route: 065
  95. FLUTICASONE [Suspect]
     Active Substance: FLUTICASONE
     Route: 065
  96. FLUTICASONE [Suspect]
     Active Substance: FLUTICASONE
     Route: 065
  97. SULFAMETHOXAZOLE\TRIMETHOPRIM [Suspect]
     Active Substance: SULFAMETHOXAZOLE\TRIMETHOPRIM
     Indication: Product used for unknown indication
     Dosage: 2 ADMINISTRATIONS
     Route: 065
  98. VENTOLIN [Suspect]
     Active Substance: ALBUTEROL SULFATE
     Indication: Eosinophilic granulomatosis with polyangiitis
     Route: 065
  99. VENTOLIN [Suspect]
     Active Substance: ALBUTEROL SULFATE
     Route: 065
  100. VENTOLIN [Suspect]
     Active Substance: ALBUTEROL SULFATE
     Route: 065
  101. SODIUM BICARBONATE\SODIUM CHLORIDE [Suspect]
     Active Substance: SODIUM BICARBONATE\SODIUM CHLORIDE
     Indication: Product used for unknown indication
     Route: 048
  102. SODIUM BICARBONATE\SODIUM CHLORIDE [Suspect]
     Active Substance: SODIUM BICARBONATE\SODIUM CHLORIDE
     Route: 065
  103. SODIUM BICARBONATE\SODIUM CHLORIDE [Suspect]
     Active Substance: SODIUM BICARBONATE\SODIUM CHLORIDE
     Route: 045
  104. SODIUM BICARBONATE\SODIUM CHLORIDE [Suspect]
     Active Substance: SODIUM BICARBONATE\SODIUM CHLORIDE
     Route: 048
  105. GOSERELIN [Suspect]
     Active Substance: GOSERELIN
     Indication: Product used for unknown indication
     Dosage: ZOLADEX (GOSERELIN ACETATE) 2
     Route: 058
  106. GOSERELIN [Suspect]
     Active Substance: GOSERELIN
     Route: 058
  107. GOSERELIN [Suspect]
     Active Substance: GOSERELIN
     Dosage: 4 ADMINISTRATIONS
     Route: 058
  108. GOSERELIN [Suspect]
     Active Substance: GOSERELIN
     Route: 065
  109. VITAMIN D4 [Suspect]
     Active Substance: VITAMIN D4
     Indication: Product used for unknown indication
     Route: 065
  110. SODIUM BICARBONATE\SODIUM CHLORIDE [Suspect]
     Active Substance: SODIUM BICARBONATE\SODIUM CHLORIDE
     Indication: Product used for unknown indication
     Route: 065
  111. CALCIUM [Suspect]
     Active Substance: CALCIUM
     Indication: Eosinophilic granulomatosis with polyangiitis
     Dosage: 2 ADMINISTRATIONS
     Route: 065
  112. CALCIUM [Suspect]
     Active Substance: CALCIUM
     Dosage: CALCIUM CARBONATE (2 ADMINISTRATION)
     Route: 065
  113. SALMETEROL XINAFOATE [Suspect]
     Active Substance: SALMETEROL XINAFOATE
     Indication: Eosinophilic granulomatosis with polyangiitis
     Route: 065
  114. ALENDRONATE [Suspect]
     Active Substance: ALENDRONATE SODIUM
     Indication: Product used for unknown indication
     Dosage: ALENDRONATE SODIUM
     Route: 048
  115. ALENDRONATE [Suspect]
     Active Substance: ALENDRONATE SODIUM
     Route: 048
  116. ALENDRONATE [Suspect]
     Active Substance: ALENDRONATE SODIUM
     Route: 048
  117. ALENDRONATE [Suspect]
     Active Substance: ALENDRONATE SODIUM
     Dosage: ALENDRONATE SODIUM
     Route: 065
  118. ALENDRONATE [Suspect]
     Active Substance: ALENDRONATE SODIUM
     Dosage: 2 ADMINISTRATIONS ALENDRONATE SODIUM
     Route: 048
  119. ALENDRONATE [Suspect]
     Active Substance: ALENDRONATE SODIUM
     Dosage: 2 ADMINISTRATIONS ALENDRONATE SODIUM
     Route: 048
  120. ALENDRONATE [Suspect]
     Active Substance: ALENDRONATE SODIUM
     Dosage: ALENDRONATE SODIUM TRIHYDRATE
     Route: 065
  121. FLUTICASONE PROPIONATE\SALMETEROL XINAFOATE [Suspect]
     Active Substance: FLUTICASONE PROPIONATE\SALMETEROL XINAFOATE
     Indication: Eosinophilic granulomatosis with polyangiitis
     Route: 065
  122. FLUTICASONE PROPIONATE\SALMETEROL XINAFOATE [Suspect]
     Active Substance: FLUTICASONE PROPIONATE\SALMETEROL XINAFOATE
     Route: 065
  123. FLUTICASONE PROPIONATE\SALMETEROL XINAFOATE [Suspect]
     Active Substance: FLUTICASONE PROPIONATE\SALMETEROL XINAFOATE
     Route: 065
  124. FLUTICASONE PROPIONATE\SALMETEROL XINAFOATE [Suspect]
     Active Substance: FLUTICASONE PROPIONATE\SALMETEROL XINAFOATE
     Route: 065
  125. FLUTICASONE PROPIONATE\SALMETEROL XINAFOATE [Suspect]
     Active Substance: FLUTICASONE PROPIONATE\SALMETEROL XINAFOATE
     Route: 065
  126. FLUTICASONE PROPIONATE\SALMETEROL XINAFOATE [Suspect]
     Active Substance: FLUTICASONE PROPIONATE\SALMETEROL XINAFOATE
     Route: 065
  127. FLUTICASONE PROPIONATE\SALMETEROL XINAFOATE [Suspect]
     Active Substance: FLUTICASONE PROPIONATE\SALMETEROL XINAFOATE
     Dosage: FLUTICASONE PROPIONATE
     Route: 065
  128. FLUTICASONE PROPIONATE\SALMETEROL XINAFOATE [Suspect]
     Active Substance: FLUTICASONE PROPIONATE\SALMETEROL XINAFOATE
     Dosage: NOT SPECIFIED
     Route: 065
  129. FLUTICASONE PROPIONATE\SALMETEROL XINAFOATE [Suspect]
     Active Substance: FLUTICASONE PROPIONATE\SALMETEROL XINAFOATE
     Route: 065
  130. FLUTICASONE PROPIONATE\SALMETEROL XINAFOATE [Suspect]
     Active Substance: FLUTICASONE PROPIONATE\SALMETEROL XINAFOATE
     Route: 065
  131. FLUTICASONE PROPIONATE\SALMETEROL XINAFOATE [Suspect]
     Active Substance: FLUTICASONE PROPIONATE\SALMETEROL XINAFOATE
     Route: 065
  132. FLUTICASONE PROPIONATE\SALMETEROL XINAFOATE [Suspect]
     Active Substance: FLUTICASONE PROPIONATE\SALMETEROL XINAFOATE
     Route: 065
  133. FLUTICASONE PROPIONATE\SALMETEROL XINAFOATE [Suspect]
     Active Substance: FLUTICASONE PROPIONATE\SALMETEROL XINAFOATE
     Route: 065
  134. FLUTICASONE PROPIONATE\SALMETEROL XINAFOATE [Suspect]
     Active Substance: FLUTICASONE PROPIONATE\SALMETEROL XINAFOATE
     Dosage: 2 ADMINISTRATIONS
     Route: 065
  135. GOSERELIN [Suspect]
     Active Substance: GOSERELIN
     Indication: Product used for unknown indication
     Route: 058
  136. GOSERELIN [Suspect]
     Active Substance: GOSERELIN
     Dosage: 2 ADMINISTRATIONS
     Route: 065
  137. GOSERELIN [Suspect]
     Active Substance: GOSERELIN
     Route: 058
  138. EDETATE CALCIUM DISODIUM [Suspect]
     Active Substance: EDETATE CALCIUM DISODIUM
     Indication: Product used for unknown indication
     Route: 065
  139. EDETATE CALCIUM DISODIUM [Suspect]
     Active Substance: EDETATE CALCIUM DISODIUM
     Route: 065
  140. EDETATE CALCIUM DISODIUM [Suspect]
     Active Substance: EDETATE CALCIUM DISODIUM
     Route: 065
  141. EDETATE CALCIUM DISODIUM [Suspect]
     Active Substance: EDETATE CALCIUM DISODIUM
     Route: 065
  142. SODIUM BICARBONATE [Suspect]
     Active Substance: SODIUM BICARBONATE
     Indication: Product used for unknown indication
     Route: 065
  143. SODIUM BICARBONATE [Suspect]
     Active Substance: SODIUM BICARBONATE
     Dosage: 2 ADMINISTRATIONS
     Route: 048
  144. AZELASTINE HYDROCHLORIDE\FLUTICASONE PROPIONATE [Suspect]
     Active Substance: AZELASTINE HYDROCHLORIDE\FLUTICASONE PROPIONATE
     Indication: Eosinophilic granulomatosis with polyangiitis
     Dosage: SPRAY, METERED DOSE
     Route: 065
  145. AZELASTINE HYDROCHLORIDE\FLUTICASONE PROPIONATE [Suspect]
     Active Substance: AZELASTINE HYDROCHLORIDE\FLUTICASONE PROPIONATE
     Route: 065
  146. AZELASTINE HYDROCHLORIDE\FLUTICASONE PROPIONATE [Suspect]
     Active Substance: AZELASTINE HYDROCHLORIDE\FLUTICASONE PROPIONATE
     Dosage: AZELASTINE HYDROCHLORIDE;FLUTICASONE PROPIONATE
     Route: 065
  147. BROMHEXINE\CLORPRENALINE\SULFAMETHOXAZOLE\TRIMETHOPRIM [Suspect]
     Active Substance: BROMHEXINE\CLORPRENALINE\SULFAMETHOXAZOLE\TRIMETHOPRIM
     Indication: Product used for unknown indication
     Route: 065
  148. FOLIC ACID [Suspect]
     Active Substance: FOLIC ACID
     Indication: Product used for unknown indication
     Route: 065
  149. FOLIC ACID [Suspect]
     Active Substance: FOLIC ACID
     Route: 065
  150. CICLESONIDE [Suspect]
     Active Substance: CICLESONIDE
     Indication: Product used for unknown indication
     Route: 048
  151. CICLESONIDE [Suspect]
     Active Substance: CICLESONIDE
     Route: 045
  152. CICLESONIDE [Suspect]
     Active Substance: CICLESONIDE
     Route: 048
  153. CALCIUM DISODIUM VERSENATE [Suspect]
     Active Substance: EDETATE CALCIUM DISODIUM
     Indication: Product used for unknown indication
     Route: 065
  154. CALCIUM DISODIUM VERSENATE [Suspect]
     Active Substance: EDETATE CALCIUM DISODIUM
     Dosage: LIQUID INTRAMUSCULAR, 4 ADMINISTRATIONS
     Route: 065
  155. BROMHEXINE HYDROCHLORIDE [Suspect]
     Active Substance: BROMHEXINE HYDROCHLORIDE
     Indication: Product used for unknown indication
     Route: 065
  156. BROMHEXINE HYDROCHLORIDE [Suspect]
     Active Substance: BROMHEXINE HYDROCHLORIDE
     Route: 065
  157. AZELASTINE HYDROCHLORIDE\FLUTICASONE PROPIONATE [Suspect]
     Active Substance: AZELASTINE HYDROCHLORIDE\FLUTICASONE PROPIONATE
     Indication: Eosinophilic granulomatosis with polyangiitis
     Route: 065
  158. AZELASTINE HYDROCHLORIDE\FLUTICASONE PROPIONATE [Suspect]
     Active Substance: AZELASTINE HYDROCHLORIDE\FLUTICASONE PROPIONATE
     Route: 065
  159. FLUTICASONE PROPIONATE [Suspect]
     Active Substance: FLUTICASONE PROPIONATE
     Indication: Eosinophilic granulomatosis with polyangiitis
     Dosage: INHALATION POWDER
     Route: 065
  160. BEVACIZUMAB [Suspect]
     Active Substance: BEVACIZUMAB
     Indication: Product used for unknown indication
     Dosage: NOT SPECIFIED
     Route: 042
  161. BEVACIZUMAB [Suspect]
     Active Substance: BEVACIZUMAB
     Route: 042
  162. VITAMIN D [Suspect]
     Active Substance: VITAMIN D NOS
     Indication: Product used for unknown indication
     Route: 065
  163. VITAMIN D [Suspect]
     Active Substance: VITAMIN D NOS
     Route: 065
  164. VITAMIN D [Suspect]
     Active Substance: VITAMIN D NOS
     Dosage: ERGOCALCIFEROL, 2 ADMINISTRATIONS
     Route: 065
  165. IOBITRIDOL [Suspect]
     Active Substance: IOBITRIDOL
     Indication: Product used for unknown indication
     Route: 065
  166. IOBITRIDOL [Suspect]
     Active Substance: IOBITRIDOL
     Route: 065
  167. IOBITRIDOL [Suspect]
     Active Substance: IOBITRIDOL
     Route: 065
  168. IOBITRIDOL [Suspect]
     Active Substance: IOBITRIDOL
     Route: 065
  169. CALCIUM GLUCONATE [Suspect]
     Active Substance: CALCIUM GLUCONATE
     Indication: Product used for unknown indication
     Route: 065
  170. ERGOCALCIFEROL [Suspect]
     Active Substance: ERGOCALCIFEROL
     Indication: Product used for unknown indication
     Route: 065
  171. IOBITRIDOL [Suspect]
     Active Substance: IOBITRIDOL
     Indication: Product used for unknown indication
     Dosage: 4 ADMINISTRATIONS
     Route: 065
  172. NUCALA [Concomitant]
     Active Substance: MEPOLIZUMAB
     Indication: Eosinophilic granulomatosis with polyangiitis
     Route: 042
  173. NUCALA [Concomitant]
     Active Substance: MEPOLIZUMAB
     Dosage: 2 ADMINSTRATIONS
     Route: 042
  174. VITAMIN D2 [Concomitant]
     Active Substance: ERGOCALCIFEROL
     Indication: Product used for unknown indication
     Route: 065

REACTIONS (36)
  - Asthma [Unknown]
  - Airway remodelling [Unknown]
  - Cardiac septal defect [Unknown]
  - Blood immunoglobulin E increased [Unknown]
  - Central nervous system mass [Unknown]
  - Condition aggravated [Unknown]
  - Obesity [Unknown]
  - Eosinophilic myocarditis [Unknown]
  - Eosinophilic granulomatosis with polyangiitis [Unknown]
  - Eosinophilic pneumonia [Unknown]
  - Nasal polyps [Unknown]
  - Memory impairment [Unknown]
  - Prostate cancer [Unknown]
  - Obstructive airways disorder [Unknown]
  - Ventricular hypokinesia [Unknown]
  - Viral infection [Unknown]
  - Wall motion score index abnormal [Unknown]
  - Microangiopathy [Unknown]
  - Pneumonia [Unknown]
  - Haematuria [Unknown]
  - Eosinophil count decreased [Unknown]
  - Confusional state [Unknown]
  - Hypertension [Unknown]
  - Respiratory symptom [Unknown]
  - Chronic sinusitis [Unknown]
  - Renal disorder [Unknown]
  - Atopy [Unknown]
  - Haemorrhage [Unknown]
  - Lacrimation increased [Unknown]
  - Lymphopenia [Unknown]
  - Productive cough [Unknown]
  - Respiratory tract infection [Unknown]
  - Nodule [Unknown]
  - Eosinophil count increased [Unknown]
  - Drug ineffective [Unknown]
  - Product use in unapproved indication [Unknown]
